FAERS Safety Report 9604232 (Version 2)
Quarter: 2013Q4

REPORT INFORMATION
  Report Type: Spontaneous
  Country: FR (occurrence: FR)
  Receive Date: 20131008
  Receipt Date: 20131125
  Transmission Date: 20140711
  Serious: Yes (Disabling)
  Sender: FDA-Public Use
  Company Number: FR-ROCHE-1285703

PATIENT
  Age: 73 Year
  Sex: Male

DRUGS (6)
  1. MABTHERA [Suspect]
     Indication: RHEUMATOID ARTHRITIS
     Route: 042
     Dates: end: 201303
  2. METOJECT [Concomitant]
     Route: 065
  3. CORTANCYL [Concomitant]
  4. SPECIAFOLDINE [Concomitant]
  5. OROCAL [Concomitant]
  6. AMIODARONE [Concomitant]

REACTIONS (2)
  - Tinnitus [Unknown]
  - Neurosensory hypoacusis [Unknown]
